FAERS Safety Report 5922423-1 (Version None)
Quarter: 2008Q4

REPORT INFORMATION
  Report Type: 
  Country: None (occurrence: None)
  Receive Date: 20081017
  Receipt Date: 20081014
  Transmission Date: 20090506
  Serious: Yes (Death, Hospitalization)
  Sender: FDA-Public Use
  Company Number: DE-AVENTIS-200812564DE

PATIENT
  Age: 73 Year
  Sex: Male

DRUGS (7)
  1. TAXOTERE [Suspect]
     Indication: BRONCHIAL CARCINOMA
     Dosage: DOSE: NOT REPORTED
  2. PIPERACILLIN [Concomitant]
     Route: 042
  3. COMBACTAM [Concomitant]
     Route: 042
  4. CIPROBAY                           /00697202/ [Concomitant]
     Route: 048
  5. NEXIUM [Concomitant]
     Route: 048
  6. FORTECORTIN                        /00016001/ [Concomitant]
     Route: 048
  7. SIMVAHEXAL [Concomitant]
     Route: 048

REACTIONS (10)
  - ASTHENIA [None]
  - BODY TEMPERATURE INCREASED [None]
  - DYSPNOEA EXERTIONAL [None]
  - MULTI-ORGAN FAILURE [None]
  - NEUTROPENIA [None]
  - PNEUMONIA [None]
  - PNEUMONIA STREPTOCOCCAL [None]
  - RENAL FAILURE [None]
  - RESPIRATORY FAILURE [None]
  - SEPTIC SHOCK [None]
